FAERS Safety Report 17902521 (Version 1)
Quarter: 2020Q2

REPORT INFORMATION
  Report Type: Spontaneous
  Country: US (occurrence: US)
  Receive Date: 20200616
  Receipt Date: 20200616
  Transmission Date: 20200714
  Serious: No
  Sender: FDA-Public Use
  Company Number: US-PFIZER INC-2020231177

PATIENT
  Age: 72 Year
  Sex: Male

DRUGS (9)
  1. OMEPRAZOLE. [Concomitant]
     Active Substance: OMEPRAZOLE
     Dosage: UNK
  2. ONDANSETRON HCL [Concomitant]
     Active Substance: ONDANSETRON HYDROCHLORIDE
     Dosage: UNK
  3. MEKTOVI [Suspect]
     Active Substance: BINIMETINIB
     Indication: MALIGNANT MELANOMA
     Dosage: 45 MG, 1X/DAY
     Route: 048
     Dates: start: 2020
  4. DIAZEPAM. [Concomitant]
     Active Substance: DIAZEPAM
     Dosage: UNK
  5. TYLENOL [Concomitant]
     Active Substance: ACETAMINOPHEN
     Dosage: UNK
  6. BRAFTOVI [Suspect]
     Active Substance: ENCORAFENIB
     Indication: MALIGNANT MELANOMA
     Dosage: 450 MG, 1X/DAY
     Route: 048
     Dates: start: 2020
  7. IBUPROFEN. [Concomitant]
     Active Substance: IBUPROFEN
     Dosage: UNK
  8. LOSARTAN POTASSIUM. [Concomitant]
     Active Substance: LOSARTAN POTASSIUM
     Dosage: UNK
  9. MAGNESIUM CITRATE. [Concomitant]
     Active Substance: MAGNESIUM CITRATE
     Dosage: UNK

REACTIONS (3)
  - Off label use [Unknown]
  - Laboratory test abnormal [Unknown]
  - Product use issue [Unknown]

NARRATIVE: CASE EVENT DATE: 2020
